FAERS Safety Report 9355761 (Version 1)
Quarter: 2013Q2

REPORT INFORMATION
  Report Type: Spontaneous
  Country: GB (occurrence: GB)
  Receive Date: 20130619
  Receipt Date: 20130619
  Transmission Date: 20140414
  Serious: Yes (Hospitalization)
  Sender: FDA-Public Use
  Company Number: GB-PFIZER INC-2006057293

PATIENT
  Sex: Female

DRUGS (4)
  1. PHENYTOIN [Suspect]
     Indication: CONVULSION
     Dosage: 9 MG, 1X/DAY
  2. AMOXICILLIN W/CLAVULANATE POTASSIUM [Suspect]
     Dates: start: 1996
  3. LAMOTRIGINE [Suspect]
     Indication: CONVULSION
     Dosage: 75 MG, 2X/DAY
     Route: 048
  4. PHENOXYMETHYLPENICILLIN POTASSIUM [Suspect]

REACTIONS (13)
  - Candida infection [Not Recovered/Not Resolved]
  - Pharyngeal oedema [Not Recovered/Not Resolved]
  - Convulsion [Unknown]
  - Rash [Not Recovered/Not Resolved]
  - Epistaxis [Unknown]
  - Urinary retention [Not Recovered/Not Resolved]
  - Vomiting projectile [Unknown]
  - Lactose intolerance [Unknown]
  - Diarrhoea [Unknown]
  - Upper limb fracture [Unknown]
  - Upper respiratory tract infection [Unknown]
  - Drug ineffective [Unknown]
  - Abnormal faeces [Unknown]
